FAERS Safety Report 9665808 (Version 1)
Quarter: 2013Q4

REPORT INFORMATION
  Report Type: Spontaneous
  Country: US (occurrence: None)
  Receive Date: 20131031
  Receipt Date: 20131031
  Transmission Date: 20140711
  Serious: Yes (Life-Threatening, Hospitalization)
  Sender: FDA-Public Use
  Company Number: None

PATIENT
  Age: 31 Year
  Sex: Female
  Weight: 61.69 kg

DRUGS (1)
  1. SULFASALAZINE [Suspect]
     Indication: COLITIS ULCERATIVE
     Route: 048
     Dates: start: 20130827, end: 20130826

REACTIONS (10)
  - Rash generalised [None]
  - Pyrexia [None]
  - Hypersensitivity [None]
  - Cough [None]
  - Vomiting [None]
  - Decreased appetite [None]
  - Pulmonary embolism [None]
  - Hepatitis [None]
  - Stevens-Johnson syndrome [None]
  - Stress [None]
